FAERS Safety Report 17200575 (Version 1)
Quarter: 2019Q4

REPORT INFORMATION
  Report Type: Report from Study
  Country: JP (occurrence: JP)
  Receive Date: 20191226
  Receipt Date: 20191226
  Transmission Date: 20200122
  Serious: Yes (Hospitalization, Other)
  Sender: FDA-Public Use
  Company Number: JP-AUROBINDO-AUR-APL-2019-107176

PATIENT
  Age: 71 Year
  Sex: Female
  Weight: 53.2 kg

DRUGS (12)
  1. FOLOTYN [Suspect]
     Active Substance: PRALATREXATE
     Dosage: 30 MILLIGRAM/SQ. METER
     Route: 042
     Dates: start: 20191029
  2. FOLOTYN [Suspect]
     Active Substance: PRALATREXATE
     Dosage: MILLIGRAM/SQ. METER
     Route: 042
     Dates: start: 20191015
  3. FOLOTYN [Suspect]
     Active Substance: PRALATREXATE
     Dosage: MILLIGRAM/SQ. METER
     Route: 042
     Dates: start: 20191119
  4. FOLOTYN [Suspect]
     Active Substance: PRALATREXATE
     Dosage: MILLIGRAM/SQ. METER
     Route: 042
     Dates: start: 20191112
  5. FOLOTYN [Suspect]
     Active Substance: PRALATREXATE
     Dosage: MILLIGRAM/SQ. METER
     Route: 042
     Dates: start: 20191126, end: 20191126
  6. FOLIC ACID. [Concomitant]
     Active Substance: FOLIC ACID
     Indication: PRODUCT USED FOR UNKNOWN INDICATION
     Dosage: UNK
     Route: 048
  7. FOLOTYN [Suspect]
     Active Substance: PRALATREXATE
     Indication: ANGIOIMMUNOBLASTIC T-CELL LYMPHOMA STAGE III
     Dosage: 30 MILLIGRAM/SQ. METER
     Route: 042
     Dates: start: 20190910, end: 20190910
  8. FOLOTYN [Suspect]
     Active Substance: PRALATREXATE
     Dosage: 30 MILLIGRAM/SQ. METER
     Route: 042
     Dates: start: 20191001
  9. FOLOTYN [Suspect]
     Active Substance: PRALATREXATE
     Dosage: 30 MILLIGRAM/SQ. METER
     Route: 042
     Dates: start: 20191015
  10. FOLOTYN [Suspect]
     Active Substance: PRALATREXATE
     Dosage: 30 MILLIGRAM/SQ. METER
     Route: 042
     Dates: start: 20191008
  11. FOLOTYN [Suspect]
     Active Substance: PRALATREXATE
     Dosage: MILLIGRAM/SQ. METER
     Route: 042
     Dates: start: 20191105
  12. CYANOCOBALAMIN. [Concomitant]
     Active Substance: CYANOCOBALAMIN
     Indication: PRODUCT USED FOR UNKNOWN INDICATION
     Dosage: UNK
     Route: 030

REACTIONS (7)
  - Neutrophil count decreased [Unknown]
  - Rash [Recovering/Resolving]
  - Platelet count decreased [Recovered/Resolved]
  - Hypokalaemia [Recovered/Resolved]
  - Hyperkalaemia [Recovered/Resolved]
  - Stomatitis [Not Recovered/Not Resolved]
  - Tonsillitis [Recovered/Resolved]

NARRATIVE: CASE EVENT DATE: 20190910
